FAERS Safety Report 7295189-3 (Version None)
Quarter: 2011Q1

REPORT INFORMATION
  Report Type: 
  Country: None (occurrence: None)
  Receive Date: 20110216
  Receipt Date: 20101119
  Transmission Date: 20110831
  Serious: No
  Sender: FDA-Public Use
  Company Number: A0894263A

PATIENT
  Age: 65 Year
  Sex: Male

DRUGS (3)
  1. HIGH BLOOD PRESSURE PILL [Concomitant]
  2. VOTRIENT [Suspect]
     Dosage: 800MG PER DAY
     Route: 048
     Dates: start: 20100904
  3. PRILOSEC [Concomitant]

REACTIONS (2)
  - ABDOMINAL DISCOMFORT [None]
  - DIARRHOEA [None]
